FAERS Safety Report 24853038 (Version 1)
Quarter: 2025Q1

REPORT INFORMATION
  Report Type: Spontaneous
  Country: CO (occurrence: CO)
  Receive Date: 20250116
  Receipt Date: 20250116
  Transmission Date: 20250409
  Serious: Yes (Other)
  Sender: SANOFI AVENTIS
  Company Number: CO-DialogSolutions-SAAVPROD-PI484628-C1

PATIENT
  Age: 55 Year
  Sex: Male

DRUGS (4)
  1. THYROTROPIN ALFA [Suspect]
     Active Substance: THYROTROPIN ALFA
  2. IODINE (IODINE) [Concomitant]
     Active Substance: IODINE
     Indication: Follicular thyroid cancer
  3. IODINE (IODINE) [Concomitant]
     Active Substance: IODINE
  4. LT4 [Concomitant]
     Indication: Follicular thyroid cancer

REACTIONS (6)
  - Follicular thyroid cancer [Unknown]
  - Disease progression [Unknown]
  - Alopecia [Unknown]
  - Abdominal mass [Unknown]
  - Metastases to bone [Unknown]
  - Bone pain [Unknown]
